FAERS Safety Report 9462688 (Version 3)
Quarter: 2013Q4

REPORT INFORMATION
  Report Type: Spontaneous
  Country: US (occurrence: US)
  Receive Date: 20130816
  Receipt Date: 20131107
  Transmission Date: 20140711
  Serious: No
  Sender: FDA-Public Use
  Company Number: US-PFIZER INC-2013236236

PATIENT
  Age: 64 Year
  Sex: Female
  Weight: 60.32 kg

DRUGS (6)
  1. LEVOXYL [Suspect]
     Dosage: 100 UG, 1X/DAY
     Route: 048
     Dates: end: 201304
  2. LEVOXYL [Suspect]
     Dosage: 88 UG, 1X/DAY
     Route: 048
     Dates: start: 201304, end: 2013
  3. LEVOXYL [Suspect]
     Dosage: UNK
     Route: 048
     Dates: start: 2013
  4. CALCIUM [Concomitant]
     Dosage: UNK
  5. VITAMIN D [Concomitant]
     Dosage: UNK
  6. LOTREL [Concomitant]
     Indication: HYPERTENSION
     Dosage: (AMLODIPINE 10MG/ BENAZEPRIL HYDROCHLORIDE 20MG), UNK
     Dates: start: 2003

REACTIONS (3)
  - Drug intolerance [Unknown]
  - Palpitations [Unknown]
  - Psychomotor hyperactivity [Unknown]
